FAERS Safety Report 6012913-8 (Version None)
Quarter: 2008Q4

REPORT INFORMATION
  Report Type: 
  Country: None (occurrence: None)
  Receive Date: 20081219
  Receipt Date: 20081216
  Transmission Date: 20090506
  Serious: Yes (Hospitalization)
  Sender: FDA-Public Use
  Company Number: NL-BRISTOL-MYERS SQUIBB COMPANY-12550893

PATIENT
  Age: 66 Year
  Sex: Female
  Weight: 81 kg

DRUGS (3)
  1. PACLITAXEL [Suspect]
     Indication: ENDOMETRIAL CANCER
     Dates: start: 20040325, end: 20040325
  2. CISPLATIN [Suspect]
     Indication: ENDOMETRIAL CANCER
     Dates: start: 20040325, end: 20040325
  3. ADRIAMYCIN PFS [Suspect]
     Indication: ENDOMETRIAL CANCER
     Dates: start: 20040325, end: 20040325

REACTIONS (1)
  - DIARRHOEA [None]
